FAERS Safety Report 4621227-X (Version None)
Quarter: 2005Q1

REPORT INFORMATION
  Report Type: 
  Country: None (occurrence: None)
  Receive Date: 20050322
  Receipt Date: 20050322
  Transmission Date: 20050727
  Serious: Yes (Other)
  Sender: FDA-Public Use
  Company Number: None

PATIENT
  Age: 57 Year
  Sex: Female
  Weight: 85.7298 kg

DRUGS (6)
  1. FENTANYL [Suspect]
     Indication: BREAST CANCER METASTATIC
     Dosage: 25 MCG /HR Q 3 DAYS
     Dates: start: 20050228
  2. FENTANYL [Suspect]
     Indication: BREAST CANCER METASTATIC
     Dosage: 25 MCG /HR Q 3 DAYS
     Dates: start: 20050303
  3. FENTANYL [Suspect]
     Indication: BREAST CANCER METASTATIC
     Dosage: 25 MCG /HR Q 3 DAYS
     Dates: start: 20050306
  4. FENTANYL [Suspect]
     Indication: BREAST CANCER METASTATIC
     Dosage: 25 MCG /HR Q 3 DAYS
     Dates: start: 20050309
  5. FENTANYL [Suspect]
     Indication: BREAST CANCER METASTATIC
     Dosage: 25 MCG /HR Q 3 DAYS
     Dates: start: 20050312
  6. FENTANYL [Suspect]
     Indication: BREAST CANCER METASTATIC
     Dosage: 25 MCG /HR Q 3 DAYS
     Dates: start: 20050315

REACTIONS (4)
  - DIZZINESS [None]
  - FEELING ABNORMAL [None]
  - HYPERVENTILATION [None]
  - NAUSEA [None]
